FAERS Safety Report 22033033 (Version 1)
Quarter: 2023Q1

REPORT INFORMATION
  Report Type: Spontaneous
  Country: FI (occurrence: FI)
  Receive Date: 20230224
  Receipt Date: 20230224
  Transmission Date: 20230418
  Serious: Yes (Hospitalization)
  Sender: FDA-Public Use
  Company Number: FI-STRIDES ARCOLAB LIMITED-2023SP002590

PATIENT
  Age: 26 Year
  Sex: Male

DRUGS (16)
  1. DISULFIRAM [Interacting]
     Active Substance: DISULFIRAM
     Indication: Alcohol use disorder
     Dosage: 200 MILLIGRAM, PER DAY
     Route: 065
     Dates: start: 202009, end: 202011
  2. OLANZAPINE [Suspect]
     Active Substance: OLANZAPINE
     Indication: Schizophrenia
     Dosage: 10-20 MG, PER DAY
     Route: 065
  3. OLANZAPINE [Suspect]
     Active Substance: OLANZAPINE
     Dosage: UNK, RE INITIATED
     Route: 065
  4. CHLORPROTHIXENE HYDROCHLORIDE [Suspect]
     Active Substance: CHLORPROTHIXENE HYDROCHLORIDE
     Indication: Schizophrenia
     Dosage: 25-100 MG PER DAY
     Route: 065
  5. CHLORPROTHIXENE HYDROCHLORIDE [Suspect]
     Active Substance: CHLORPROTHIXENE HYDROCHLORIDE
     Dosage: UNK, RE INITIATED
     Route: 065
  6. ZUCLOPENTHIXOL [Suspect]
     Active Substance: ZUCLOPENTHIXOL
     Indication: Schizophrenia
     Dosage: 50 MILLIGRAM, PER DAY
     Route: 030
  7. ZUCLOPENTHIXOL [Suspect]
     Active Substance: ZUCLOPENTHIXOL
     Dosage: UNK, RE INITIATED
     Route: 065
  8. CLOZAPINE [Interacting]
     Active Substance: CLOZAPINE
     Indication: Schizophrenia
     Dosage: 400 MILLIGRAM, PER DAY
     Route: 065
     Dates: start: 202007
  9. CLOZAPINE [Interacting]
     Active Substance: CLOZAPINE
     Dosage: 650 MILLIGRAM, PER DAY
     Route: 065
     Dates: start: 2020
  10. CLOZAPINE [Interacting]
     Active Substance: CLOZAPINE
     Dosage: 600 MILLIGRAM, PER DAY
     Route: 065
     Dates: start: 2020
  11. CLOZAPINE [Interacting]
     Active Substance: CLOZAPINE
     Dosage: 400 MILLIGRAM, UNKNOWN
     Route: 065
     Dates: start: 2020
  12. CLOZAPINE [Interacting]
     Active Substance: CLOZAPINE
     Dosage: UNK, RE INITIATED, STARTING WITH A SMALLER DOSE
     Route: 065
  13. CLOZAPINE [Interacting]
     Active Substance: CLOZAPINE
     Dosage: UNK, GRADUALLY INCREASING TO A HIGHER DOSE
     Route: 065
  14. CLOZAPINE [Interacting]
     Active Substance: CLOZAPINE
     Dosage: 500 MILLIGRAM, UNKNOWN
     Route: 065
  15. SCOPOLAMINE [Concomitant]
     Active Substance: SCOPOLAMINE
     Indication: Salivary hypersecretion
     Dosage: 1 MILLIGRAM PER 72 HRS
     Route: 062
  16. BUPRENORPHINE [Concomitant]
     Active Substance: BUPRENORPHINE
     Indication: Product used for unknown indication
     Dosage: 16 MILLIGRAM, PER WEEK, LONG-ACTING INJECTABLE
     Route: 065

REACTIONS (6)
  - Oropharyngeal pain [Unknown]
  - Antipsychotic drug level increased [Recovered/Resolved]
  - Neuroleptic malignant syndrome [Recovered/Resolved]
  - Drug interaction [Unknown]
  - Headache [Unknown]
  - Vomiting [Unknown]

NARRATIVE: CASE EVENT DATE: 20200101
